FAERS Safety Report 5709839-3 (Version None)
Quarter: 2008Q2

REPORT INFORMATION
  Report Type: 
  Country: None (occurrence: None)
  Receive Date: 20080418
  Receipt Date: 20080208
  Transmission Date: 20081010
  Serious: No
  Sender: FDA-Public Use
  Company Number: US-ASTRAZENECA-2006UW27052

PATIENT
  Age: 82 Year
  Sex: Female
  Weight: 56.7 kg

DRUGS (3)
  1. TOPROL-XL [Suspect]
     Indication: CARDIAC DISORDER
     Route: 048
     Dates: start: 20061026
  2. DIOVAN HCT [Concomitant]
  3. NORVASC [Concomitant]

REACTIONS (6)
  - FATIGUE [None]
  - HEADACHE [None]
  - ILL-DEFINED DISORDER [None]
  - MUSCULAR WEAKNESS [None]
  - MYALGIA [None]
  - VISUAL DISTURBANCE [None]
